FAERS Safety Report 23704010 (Version 4)
Quarter: 2025Q2

REPORT INFORMATION
  Report Type: Report from Study
  Country: US (occurrence: US)
  Receive Date: 20240403
  Receipt Date: 20250403
  Transmission Date: 20250717
  Serious: Yes (Hospitalization, Other)
  Sender: ABBVIE
  Company Number: US-ABBVIE-5700694

PATIENT
  Age: 48 Year
  Sex: Male

DRUGS (1)
  1. SKYRIZI [Suspect]
     Active Substance: RISANKIZUMAB-RZAA
     Indication: Psoriatic arthropathy
     Dosage: EVERY 3 MONTHS
     Route: 058
     Dates: start: 20230410, end: 2024

REACTIONS (16)
  - Myocardial infarction [Recovered/Resolved]
  - Cerebrovascular accident [Recovering/Resolving]
  - International normalised ratio decreased [Unknown]
  - Diabetes mellitus [Not Recovered/Not Resolved]
  - Memory impairment [Recovering/Resolving]
  - Peripheral swelling [Unknown]
  - Gait inability [Unknown]
  - Chest discomfort [Recovered/Resolved with Sequelae]
  - Peripheral swelling [Recovered/Resolved with Sequelae]
  - Cardiovascular disorder [Unknown]
  - Throat tightness [Recovered/Resolved with Sequelae]
  - Musculoskeletal stiffness [Unknown]
  - Atrial fibrillation [Unknown]
  - Psoriatic arthropathy [Unknown]
  - Therapeutic response shortened [Unknown]
  - Psoriasis [Recovering/Resolving]

NARRATIVE: CASE EVENT DATE: 20240101
